FAERS Safety Report 9546998 (Version 1)
Quarter: 2013Q3

REPORT INFORMATION
  Report Type: Spontaneous
  Country: US (occurrence: US)
  Receive Date: 20130924
  Receipt Date: 20130924
  Transmission Date: 20140515
  Serious: No
  Sender: FDA-Public Use
  Company Number: US-009507513-1309USA005670

PATIENT
  Sex: Male

DRUGS (3)
  1. DULERA [Suspect]
     Indication: TOTAL LUNG CAPACITY DECREASED
     Dosage: 200/5MCG/ TWO PUFFS/ TWICE DAILY
     Route: 055
     Dates: start: 201205, end: 201209
  2. METFORMIN [Concomitant]
  3. GLIMEPIRIDE [Concomitant]

REACTIONS (1)
  - Dizziness [Recovering/Resolving]
